FAERS Safety Report 9831226 (Version 1)
Quarter: 2014Q1

REPORT INFORMATION
  Report Type: Spontaneous
  Country: US (occurrence: US)
  Receive Date: 20140121
  Receipt Date: 20140121
  Transmission Date: 20141002
  Serious: Yes (Other)
  Sender: FDA-Public Use
  Company Number: US-BIOGENIDEC-2013BI056128

PATIENT
  Sex: Female

DRUGS (2)
  1. TYSABRI [Suspect]
     Indication: EXPOSURE VIA FATHER
     Dates: start: 20060925, end: 20110509
  2. TYSABRI [Suspect]
     Indication: EXPOSURE VIA FATHER
     Dates: start: 20110805

REACTIONS (2)
  - Foetal distress syndrome [Unknown]
  - Gestational diabetes [Unknown]
